FAERS Safety Report 4411793-1 (Version None)
Quarter: 2004Q3

REPORT INFORMATION
  Report Type: 
  Country: None (occurrence: None)
  Receive Date: 20040730
  Receipt Date: 20040426
  Transmission Date: 20050211
  Serious: Yes (Hospitalization)
  Sender: FDA-Public Use
  Company Number: 200411711FR

PATIENT
  Age: 35 Year
  Sex: Female
  Weight: 63 kg

DRUGS (4)
  1. FLAGYL [Suspect]
     Indication: SURGERY
     Dosage: DOSE: 1-1-1; DOSE UNIT: UNITS
     Route: 048
     Dates: start: 20040419, end: 20040421
  2. DI-ANTALVIC [Suspect]
     Route: 048
     Dates: start: 20040419, end: 20040421
  3. TRIMINULET [Concomitant]
     Indication: ORAL CONTRACEPTION
  4. FASIGYN [Concomitant]

REACTIONS (9)
  - ABASIA [None]
  - ASTHENIA [None]
  - COORDINATION ABNORMAL [None]
  - FEELING HOT AND COLD [None]
  - LOSS OF CONSCIOUSNESS [None]
  - NAUSEA [None]
  - PARALYSIS [None]
  - VERTIGO [None]
  - VOMITING [None]
